FAERS Safety Report 11172727 (Version 4)
Quarter: 2015Q3

REPORT INFORMATION
  Report Type: Spontaneous
  Country: US (occurrence: US)
  Receive Date: 20150608
  Receipt Date: 20150915
  Transmission Date: 20151125
  Serious: Yes (Hospitalization, Other)
  Sender: FDA-Public Use
  Company Number: US-GILEAD-2015-0156682

PATIENT
  Age: 32 Year
  Sex: Female
  Weight: 90.25 kg

DRUGS (11)
  1. XANAX [Concomitant]
     Active Substance: ALPRAZOLAM
     Indication: PAIN
     Dosage: 0.5 DF, TID
     Route: 048
  2. DEXILANT [Concomitant]
     Active Substance: DEXLANSOPRAZOLE
     Indication: GASTROOESOPHAGEAL REFLUX DISEASE
     Dosage: 60 MG, QD
     Route: 048
  3. HARVONI [Suspect]
     Active Substance: LEDIPASVIR\SOFOSBUVIR
     Indication: HEPATITIS C
     Dosage: 1 DF, QD
     Route: 065
     Dates: start: 201505, end: 201505
  4. PHENERGAN [Concomitant]
     Active Substance: PROMETHAZINE HYDROCHLORIDE
     Dosage: 25 MG, PRN
     Route: 048
  5. ROXICODONE [Concomitant]
     Active Substance: OXYCODONE HYDROCHLORIDE
     Indication: PAIN
     Dosage: 15 MG, QID
     Route: 048
  6. VITAMIN B12 [Concomitant]
     Active Substance: CYANOCOBALAMIN
     Dosage: 100 UG, QD
     Route: 048
  7. SOMA [Concomitant]
     Active Substance: CARISOPRODOL
     Indication: PAIN
     Dosage: 350 MG, BID
     Route: 048
  8. SINGULAIR [Concomitant]
     Active Substance: MONTELUKAST SODIUM
     Dosage: 10 MG, QD
     Route: 048
  9. COMBIVENT [Concomitant]
     Active Substance: ALBUTEROL SULFATE\IPRATROPIUM BROMIDE
     Dosage: 1 DF, QID
     Route: 050
  10. KLONOPIN [Concomitant]
     Active Substance: CLONAZEPAM
     Indication: PAIN
     Dosage: 2 MG, BID
     Route: 048
  11. NICOTINE. [Concomitant]
     Active Substance: NICOTINE

REACTIONS (21)
  - Gait disturbance [Unknown]
  - Blood creatine phosphokinase increased [Unknown]
  - Paranoia [Unknown]
  - Acute kidney injury [Unknown]
  - Emotional disorder [Unknown]
  - Nephrolithiasis [Unknown]
  - Urinary tract infection [Unknown]
  - Migraine [Unknown]
  - Anxiety [Unknown]
  - Urticaria [Unknown]
  - Muscular weakness [Unknown]
  - Renal failure [Recovered/Resolved]
  - Syncope [Unknown]
  - Fall [Unknown]
  - Myalgia [Unknown]
  - Arthralgia [Unknown]
  - Decreased appetite [Unknown]
  - Dysarthria [Unknown]
  - Urinary hesitation [Unknown]
  - Tearfulness [Unknown]
  - Rash pruritic [Recovered/Resolved]

NARRATIVE: CASE EVENT DATE: 2015
